FAERS Safety Report 6532427-6 (Version None)
Quarter: 2010Q1

REPORT INFORMATION
  Report Type: 
  Country: None (occurrence: None)
  Receive Date: 20100108
  Receipt Date: 20091231
  Transmission Date: 20100710
  Serious: Yes (Hospitalization, Other)
  Sender: FDA-Public Use
  Company Number: US-ELI_LILLY_AND_COMPANY-US201001000163

PATIENT
  Sex: Female

DRUGS (3)
  1. HUMALOG [Suspect]
     Indication: BLOOD GLUCOSE FLUCTUATION
     Dosage: UNK, AS NEEDED
     Dates: start: 20080101
  2. BYETTA [Concomitant]
     Dosage: 5 UG, 2/D
     Dates: start: 20060101, end: 20090511
  3. LANTUS [Concomitant]
     Dosage: 30 U, EACH EVENING

REACTIONS (12)
  - ACIDOSIS [None]
  - ADVERSE DRUG REACTION [None]
  - BLOOD AMYLASE INCREASED [None]
  - BLOOD GLUCOSE INCREASED [None]
  - DEVICE RELATED INFECTION [None]
  - DIABETES MELLITUS INADEQUATE CONTROL [None]
  - HOSPITALISATION [None]
  - LIPASE INCREASED [None]
  - LOCALISED INFECTION [None]
  - PANCREATITIS [None]
  - RENAL FAILURE ACUTE [None]
  - THROMBOCYTOPENIA [None]
